FAERS Safety Report 13226592 (Version 1)
Quarter: 2017Q1

REPORT INFORMATION
  Report Type: Spontaneous
  Country: FR (occurrence: FR)
  Receive Date: 20170213
  Receipt Date: 20170213
  Transmission Date: 20170428
  Serious: Yes (Hospitalization)
  Sender: FDA-Public Use
  Company Number: FR-JNJFOC-20170208714

PATIENT
  Age: 81 Year
  Sex: Male

DRUGS (9)
  1. NOCTAMIDE [Suspect]
     Active Substance: LORMETAZEPAM
     Indication: AGGRESSION
     Route: 048
     Dates: start: 20160809, end: 20160810
  2. DEROXAT [Concomitant]
     Active Substance: PAROXETINE HYDROCHLORIDE
     Route: 048
  3. RISPERDAL [Suspect]
     Active Substance: RISPERIDONE
     Indication: AGGRESSION
     Route: 048
     Dates: start: 20160809, end: 20160809
  4. NOZINAN [Suspect]
     Active Substance: LEVOMEPROMAZINE
     Indication: AGGRESSION
     Route: 048
     Dates: start: 20160809, end: 20160809
  5. TRANSIPEG [Concomitant]
     Active Substance: POLYETHYLENE GLYCOL 3350
     Dosage: IN THE MORNING
     Route: 065
  6. LEVOTHYROX [Concomitant]
     Active Substance: LEVOTHYROXINE
     Route: 048
  7. MODOPAR [Concomitant]
     Active Substance: BENSERAZIDE HYDROCHLORIDE\LEVODOPA
     Dosage: 1-1-1
     Route: 048
  8. XATRAL [Concomitant]
     Active Substance: ALFUZOSIN
     Dosage: IN THE EVENING
     Route: 048
  9. DEPAKOTE [Concomitant]
     Active Substance: DIVALPROEX SODIUM
     Route: 048

REACTIONS (2)
  - Respiratory depression [Recovered/Resolved]
  - Coma [Recovered/Resolved]

NARRATIVE: CASE EVENT DATE: 20160810
